FAERS Safety Report 23846636 (Version 1)
Quarter: 2024Q2

REPORT INFORMATION
  Report Type: Report from Study
  Country: US (occurrence: US)
  Receive Date: 20240513
  Receipt Date: 20240513
  Transmission Date: 20240715
  Serious: Yes (Death, Hospitalization, Other)
  Sender: FDA-Public Use
  Company Number: US-JNJFOC-20240513441

PATIENT
  Age: 92 Year
  Sex: Male

DRUGS (1)
  1. ERLEADA [Suspect]
     Active Substance: APALUTAMIDE
     Indication: Product used for unknown indication
     Route: 048

REACTIONS (12)
  - Fall [Fatal]
  - Multiple fractures [Unknown]
  - Asthenia [Unknown]
  - Dizziness [Unknown]
  - Rash vesicular [Unknown]
  - Decreased appetite [Unknown]
  - Diarrhoea [Unknown]
  - Pruritus [Unknown]
  - Headache [Unknown]
  - Weight decreased [Unknown]
  - Peripheral swelling [Unknown]
  - Hypersomnia [Unknown]
